FAERS Safety Report 4499276-4 (Version None)
Quarter: 2004Q4

REPORT INFORMATION
  Report Type: 
  Country: None (occurrence: None)
  Receive Date: 20041111
  Receipt Date: 20041101
  Transmission Date: 20050328
  Serious: Yes (Hospitalization)
  Sender: FDA-Public Use
  Company Number: DK-JNJFOC-20040908793

PATIENT
  Sex: Female

DRUGS (16)
  1. SPORANOX [Suspect]
     Route: 049
     Dates: start: 20040319
  2. SPORANOX [Suspect]
     Indication: FUNGAL INFECTION
     Dosage: 19MAR04-25MAR04, 29MAR04-CONTINUOUS
     Route: 049
     Dates: start: 20040319
  3. AMPRENAVIR [Suspect]
     Indication: HIV INFECTION
     Route: 049
     Dates: start: 20031103, end: 20040220
  4. RITONAVIR [Suspect]
     Route: 049
     Dates: start: 20020211
  5. RITONAVIR [Suspect]
     Indication: HIV INFECTION
     Route: 049
     Dates: start: 20020211
  6. TRIZIVIR [Concomitant]
     Dates: start: 20031106
  7. TRIZIVIR [Concomitant]
     Dates: start: 20031106
  8. TRIZIVIR [Concomitant]
     Dates: start: 20031106
  9. VIDEX [Concomitant]
     Dates: start: 20020211
  10. VIDEX [Concomitant]
     Indication: HIV INFECTION
     Dates: start: 20020211
  11. FOSAMPRENAVIR [Concomitant]
     Dates: start: 20040220
  12. FOSAMPRENAVIR [Concomitant]
     Indication: HIV INFECTION
     Dates: start: 20040220
  13. SULFADIAZINE [Concomitant]
     Dates: start: 20040213
  14. SULFADIAZINE [Concomitant]
     Indication: TOXOPLASMOSIS
     Dates: start: 20040213
  15. DARAPRIM [Concomitant]
     Dates: start: 20040213
  16. DARAPRIM [Concomitant]
     Indication: TOXOPLASMOSIS
     Dates: start: 20040213

REACTIONS (2)
  - OESOPHAGEAL CANDIDIASIS [None]
  - VOMITING [None]
